FAERS Safety Report 17293018 (Version 2)
Quarter: 2020Q3

REPORT INFORMATION
  Report Type: Spontaneous
  Country: US (occurrence: US)
  Receive Date: 20200121
  Receipt Date: 20200723
  Transmission Date: 20201102
  Serious: No
  Sender: FDA-Public Use
  Company Number: US-PFIZER INC-2018298230

PATIENT
  Age: 66 Year
  Sex: Female

DRUGS (1)
  1. LYRICA [Suspect]
     Active Substance: PREGABALIN
     Indication: DIABETIC NEUROPATHY
     Dosage: 450 MG, DAILY (1 TAB PO AT AM 2 TAB PO AT HS (AT BEDTIME))
     Route: 048

REACTIONS (5)
  - Anxiety [Unknown]
  - Chest pain [Unknown]
  - Oropharyngeal discomfort [Unknown]
  - Off label use [Unknown]
  - Cough [Unknown]
